FAERS Safety Report 16099643 (Version 1)
Quarter: 2019Q1

REPORT INFORMATION
  Report Type: Spontaneous
  Country: US (occurrence: US)
  Receive Date: 20190218
  Receipt Date: 20190218
  Transmission Date: 20190418
  Serious: No
  Sender: FDA-Public Use
  Company Number: None

PATIENT
  Age: 40 Year
  Sex: Male

DRUGS (1)
  1. DARZALEX [Suspect]
     Active Substance: DARATUMUMAB
     Indication: MENOPAUSAL DISORDER
     Route: 042
     Dates: start: 20190215

REACTIONS (4)
  - Chills [None]
  - Cough [None]
  - Vomiting [None]
  - Feeling cold [None]

NARRATIVE: CASE EVENT DATE: 20190215
